FAERS Safety Report 22060741 (Version 1)
Quarter: 2023Q1

REPORT INFORMATION
  Report Type: Spontaneous
  Country: US (occurrence: None)
  Receive Date: 20230303
  Receipt Date: 20230303
  Transmission Date: 20230418
  Serious: Yes (Disabling, Other)
  Sender: FDA-Public Use
  Company Number: None

PATIENT
  Age: 60 Year
  Sex: Male
  Weight: 89.81 kg

DRUGS (2)
  1. OZEMPIC [Suspect]
     Active Substance: SEMAGLUTIDE
     Indication: Diabetes mellitus inadequate control
     Dates: start: 202212
  2. OZEMPIC [Suspect]
     Active Substance: SEMAGLUTIDE
     Indication: Weight decreased

REACTIONS (10)
  - Nausea [None]
  - Decreased appetite [None]
  - Malaise [None]
  - Fatigue [None]
  - Abdominal pain upper [None]
  - Pain [None]
  - Back pain [None]
  - Pancreatic mass [None]
  - Gastritis [None]
  - Pancreatitis [None]

NARRATIVE: CASE EVENT DATE: 20230127
